FAERS Safety Report 6216027-3 (Version None)
Quarter: 2009Q2

REPORT INFORMATION
  Report Type: 
  Country: None (occurrence: None)
  Receive Date: 20090605
  Receipt Date: 20090525
  Transmission Date: 20091009
  Serious: Yes (Other)
  Sender: FDA-Public Use
  Company Number: PHHY2009AU12598

PATIENT
  Sex: Female

DRUGS (15)
  1. CLOZARIL [Suspect]
     Indication: SCHIZOPHRENIA
     Dosage: 100 MG DAILY
     Route: 048
     Dates: start: 20070429, end: 20070501
  2. CLOZARIL [Suspect]
     Dosage: 150 MG DAILY
     Route: 048
     Dates: start: 20070501, end: 20070508
  3. CLOZARIL [Suspect]
     Dosage: 250 MG DAILY
     Route: 048
     Dates: start: 20070508, end: 20070515
  4. CLOZARIL [Suspect]
     Dosage: 275 MG DAILY
     Route: 048
     Dates: start: 20070515, end: 20070522
  5. CLOZARIL [Suspect]
     Dosage: 300 MG DAILY
     Route: 048
     Dates: start: 20070522, end: 20070724
  6. CLOZARIL [Suspect]
     Dosage: 250 MG DAILY
     Route: 048
     Dates: start: 20070724, end: 20070731
  7. CLOZARIL [Suspect]
     Dosage: 150 MG DAILY
     Route: 048
     Dates: start: 20070731, end: 20070808
  8. CLOZARIL [Suspect]
     Dosage: 100 MG DAILY
     Route: 048
     Dates: start: 20070808, end: 20070815
  9. CLOZARIL [Suspect]
     Dosage: 50 MG DAILY
     Route: 048
     Dates: start: 20070815, end: 20070822
  10. CLOZARIL [Suspect]
     Dosage: 100 MG DAILY
     Route: 048
     Dates: start: 20070822, end: 20081203
  11. CLOZARIL [Suspect]
     Dosage: 75 MG DAILY
     Route: 048
     Dates: start: 20081203, end: 20090224
  12. CLOZARIL [Suspect]
     Dosage: 50 MG DAILY
     Route: 048
     Dates: start: 20090224
  13. CLOZARIL [Suspect]
     Dosage: UNK
     Route: 048
     Dates: end: 20090402
  14. MIRTAZAPINE [Concomitant]
     Dosage: 60 MG/DAY
  15. VALPROATE SODIUM [Concomitant]
     Dosage: 700 MG, QHS

REACTIONS (6)
  - ANTINEUTROPHIL CYTOPLASMIC ANTIBODY POSITIVE [None]
  - BLOOD CHOLESTEROL ABNORMAL [None]
  - DRUG DEPENDENCE [None]
  - NEUTROPHIL COUNT INCREASED [None]
  - WEIGHT INCREASED [None]
  - WHITE BLOOD CELL COUNT INCREASED [None]
